FAERS Safety Report 10386671 (Version 1)
Quarter: 2014Q1

REPORT INFORMATION
  Report Type: Spontaneous
  Country: US (occurrence: None)
  Receive Date: 20140306
  Receipt Date: 20140306
  Transmission Date: 20141002
  Serious: Yes (Other)
  Sender: FDA-Public Use
  Company Number: 163-21880-13120911

PATIENT
  Age: 71 Year
  Sex: Male

DRUGS (4)
  1. REVLIMID (LENALIDOMIDE) (10 MILLIGRAM, CAPSULES [Suspect]
     Indication: PLASMA CELL MYELOMA
     Route: 048
     Dates: start: 20130418
  2. VELCADE [Concomitant]
  3. DECADRON [Concomitant]
  4. LISINOPRIL [Concomitant]

REACTIONS (1)
  - Deep vein thrombosis [None]
